FAERS Safety Report 4703696-X (Version None)
Quarter: 2005Q2

REPORT INFORMATION
  Report Type: 
  Country: None (occurrence: None)
  Receive Date: 20050628
  Receipt Date: 20050608
  Transmission Date: 20051028
  Serious: Yes (Hospitalization)
  Sender: FDA-Public Use
  Company Number: US_0411107837

PATIENT
  Age: 51 Year
  Sex: Male
  Weight: 153 kg

DRUGS (9)
  1. ZYPREXA [Suspect]
     Indication: DEPRESSION
     Dosage: 25 MG AT BEDTIME
     Dates: start: 20000522, end: 20040101
  2. GLUCOPHAGE [Concomitant]
  3. ZOCOR [Concomitant]
  4. DIVALPROEX SODIUM [Concomitant]
  5. VALPROIC ACID [Concomitant]
  6. CALAN [Concomitant]
  7. DIVOAN (VALSARTAN) [Concomitant]
  8. LIPITOR [Concomitant]
  9. HYDROCHLOROTHIAZIDE [Concomitant]

REACTIONS (14)
  - BLOOD CHOLESTEROL ABNORMAL [None]
  - BLOOD GLUCOSE INCREASED [None]
  - CARDIAC STRESS TEST ABNORMAL [None]
  - CHEST PAIN [None]
  - DIABETES MELLITUS INADEQUATE CONTROL [None]
  - DIABETES MELLITUS NON-INSULIN-DEPENDENT [None]
  - DIABETES WITH HYPEROSMOLARITY [None]
  - GLYCOSYLATED HAEMOGLOBIN INCREASED [None]
  - HYPERTENSION [None]
  - POLYDIPSIA [None]
  - POLYURIA [None]
  - PRESCRIBED OVERDOSE [None]
  - REFUSAL OF TREATMENT BY PATIENT [None]
  - TREATMENT NONCOMPLIANCE [None]
